FAERS Safety Report 5233656-4 (Version None)
Quarter: 2007Q1

REPORT INFORMATION
  Report Type: 
  Country: None (occurrence: None)
  Receive Date: 20061208
  Receipt Date: 20060227
  Transmission Date: 20070707
  Serious: Yes (Other)
  Sender: FDA-Public Use
  Company Number: 2006UW03321

PATIENT
  Age: 64 Year
  Sex: Male
  Weight: 74.842 kg

DRUGS (1)
  1. CRESTOR [Suspect]
     Indication: BLOOD TRIGLYCERIDES INCREASED
     Dosage: 10 MG PO
     Route: 048

REACTIONS (2)
  - EYE DISORDER [None]
  - FLATULENCE [None]
